FAERS Safety Report 23749624 (Version 1)
Quarter: 2024Q2

REPORT INFORMATION
  Report Type: Report from Study
  Country: US (occurrence: US)
  Receive Date: 20240416
  Receipt Date: 20240416
  Transmission Date: 20240716
  Serious: Yes (Other)
  Sender: FDA-Public Use
  Company Number: US-ABBVIE-5720316

PATIENT
  Age: 65 Year
  Sex: Female

DRUGS (1)
  1. RINVOQ [Suspect]
     Active Substance: UPADACITINIB
     Indication: Psoriatic arthropathy
     Route: 048
     Dates: start: 20230330

REACTIONS (3)
  - Spinal operation [Recovering/Resolving]
  - Pain [Recovering/Resolving]
  - Movement disorder [Unknown]

NARRATIVE: CASE EVENT DATE: 20240111
